FAERS Safety Report 9585050 (Version 1)
Quarter: 2013Q4

REPORT INFORMATION
  Report Type: Spontaneous
  Country: US (occurrence: US)
  Receive Date: 20131002
  Receipt Date: 20131002
  Transmission Date: 20140711
  Serious: No
  Sender: FDA-Public Use
  Company Number: US-AMGEN-USASP2013061879

PATIENT
  Age: 73 Year
  Sex: Female

DRUGS (9)
  1. ENBREL [Suspect]
     Indication: PRODUCT USED FOR UNKNOWN INDICATION
     Dosage: 50 MG/ML, QWK
     Route: 058
     Dates: start: 200705
  2. SYNTHROID [Concomitant]
     Dosage: 50 MUG, UNK
  3. DIOVAN HCT [Concomitant]
     Dosage: 320-25 MG
  4. OMEPRAZOLE [Concomitant]
     Dosage: 40 MG, UNK
  5. SIMVASTATIN [Concomitant]
     Dosage: 20 MG, UNK
  6. VITAMIN D                          /00107901/ [Concomitant]
     Dosage: 1000 UNIT, UNK
  7. VYTORIN [Concomitant]
     Dosage: VYTORIN TAB 10- 40MG
  8. REMICADE [Concomitant]
     Dosage: UNK
  9. METHOTREXATE [Concomitant]
     Dosage: UNK

REACTIONS (2)
  - Skin discolouration [Unknown]
  - Drug ineffective [Unknown]
